FAERS Safety Report 5379531-6 (Version None)
Quarter: 2007Q3

REPORT INFORMATION
  Report Type: 
  Country: None (occurrence: None)
  Receive Date: 20070703
  Receipt Date: 20070621
  Transmission Date: 20080115
  Serious: Yes (Hospitalization)
  Sender: FDA-Public Use
  Company Number: 235121K07USA

PATIENT
  Age: 43 Year
  Sex: Female
  Weight: 92.9874 kg

DRUGS (1)
  1. REBIF [Suspect]
     Indication: MULTIPLE SCLEROSIS
     Dosage: 44 MCG, 3 IN 1 WEEKS, SUBCUTANEOUS
     Route: 058
     Dates: start: 20020910

REACTIONS (5)
  - ANOSMIA [None]
  - OROPHARYNGEAL CANDIDIASIS [None]
  - PSYCHOTIC DISORDER [None]
  - URINARY TRACT INFECTION [None]
  - WEIGHT DECREASED [None]
